FAERS Safety Report 25449500 (Version 1)
Quarter: 2025Q2

REPORT INFORMATION
  Report Type: Spontaneous
  Country: US (occurrence: US)
  Receive Date: 20250618
  Receipt Date: 20250618
  Transmission Date: 20250717
  Serious: Yes (Death)
  Sender: CHATTEM
  Company Number: US-OPELLA-2025OHG018316

PATIENT
  Age: 21 Year
  Sex: Female

DRUGS (2)
  1. DIPHENHYDRAMINE [Suspect]
     Active Substance: DIPHENHYDRAMINE
     Indication: Suicide attempt
     Route: 065
  2. MELATONIN [Suspect]
     Active Substance: MELATONIN
     Indication: Suicide attempt
     Route: 065

REACTIONS (2)
  - Toxicity to various agents [Fatal]
  - Intentional overdose [Fatal]
